FAERS Safety Report 4422148-8 (Version None)
Quarter: 2004Q3

REPORT INFORMATION
  Report Type: 
  Country: None (occurrence: None)
  Receive Date: 20040806
  Receipt Date: 20040728
  Transmission Date: 20050211
  Serious: Yes (Hospitalization, Other)
  Sender: FDA-Public Use
  Company Number: 2004051684

PATIENT
  Age: 31 Year
  Sex: Female

DRUGS (2)
  1. LIPITOR [Suspect]
     Indication: BLOOD CHOLESTEROL
     Dosage: UNKNOWN (40 MG, UNKNOWN), ORAL
     Route: 048
     Dates: end: 20040701
  2. CONTRACEPTIVE, UNSPECIFIED (CONTRACEPTIVE, UNSPECIFIED) [Concomitant]

REACTIONS (2)
  - RASH [None]
  - RHABDOMYOLYSIS [None]
